FAERS Safety Report 5497941-3 (Version None)
Quarter: 2007Q4

REPORT INFORMATION
  Report Type: 
  Country: None (occurrence: None)
  Receive Date: 20071025
  Receipt Date: 20070507
  Transmission Date: 20080405
  Serious: Yes (Life-Threatening)
  Sender: FDA-Public Use
  Company Number: US-SANOFI-SYNTHELABO-A03200701889

PATIENT
  Age: 83 Year
  Sex: Female
  Weight: 52.2 kg

DRUGS (1)
  1. AMBIEN [Suspect]
     Indication: DRUG USE FOR UNKNOWN INDICATION
     Dosage: UNK
     Route: 048
     Dates: start: 20060601, end: 20060101

REACTIONS (14)
  - ABNORMAL BEHAVIOUR [None]
  - AMNESIA [None]
  - COORDINATION ABNORMAL [None]
  - DELUSION [None]
  - DRUG ADMINISTRATION ERROR [None]
  - DRUG INEFFECTIVE [None]
  - DYSPHORIA [None]
  - EUPHORIC MOOD [None]
  - FALL [None]
  - HALLUCINATION [None]
  - IMPAIRED DRIVING ABILITY [None]
  - IMPULSIVE BEHAVIOUR [None]
  - INCREASED APPETITE [None]
  - MENTAL IMPAIRMENT [None]
